FAERS Safety Report 17023199 (Version 3)
Quarter: 2020Q1

REPORT INFORMATION
  Report Type: Report from Study
  Country: NL (occurrence: NL)
  Receive Date: 20191112
  Receipt Date: 20200129
  Transmission Date: 20200409
  Serious: Yes (Hospitalization)
  Sender: FDA-Public Use
  Company Number: NL-GILEAD-2019-0436914

PATIENT
  Age: 70 Year
  Sex: Male
  Weight: 84.8 kg

DRUGS (19)
  1. LEVETIRACETAM. [Suspect]
     Active Substance: LEVETIRACETAM
     Dosage: 250 MG, BID
     Route: 048
     Dates: start: 201909, end: 20190923
  2. ACETYLSALICYLZUUR [Concomitant]
     Active Substance: ASPIRIN
     Indication: PROPHYLAXIS
     Dosage: UNK
     Dates: start: 201909, end: 20190921
  3. AMITRIPTYLINE [Concomitant]
     Active Substance: AMITRIPTYLINE
     Indication: PROPHYLAXIS
     Dosage: UNK
     Dates: start: 201605
  4. COTRIMOXAZOL [Concomitant]
     Active Substance: SULFAMETHOXAZOLE\TRIMETHOPRIM
     Indication: PROPHYLAXIS
     Dosage: UNK
     Dates: start: 20190831
  5. GABAPENTINE [Concomitant]
     Active Substance: GABAPENTIN
     Indication: PROPHYLAXIS
     Dosage: UNK
     Dates: start: 2008
  6. FLUDARABINE [Suspect]
     Active Substance: FLUDARABINE PHOSPHATE
     Indication: BONE MARROW CONDITIONING REGIMEN
     Dosage: 30 MG/M2, QD
     Route: 042
     Dates: start: 20190823, end: 20190825
  7. NEUPOGEN [Concomitant]
     Active Substance: FILGRASTIM
  8. METOPROLOL SUCCINATE. [Concomitant]
     Active Substance: METOPROLOL SUCCINATE
     Indication: PROPHYLAXIS
     Dosage: UNK
     Dates: start: 20190830, end: 20190923
  9. MICONAZOL [MICONAZOLE] [Concomitant]
     Indication: SKIN INFECTION
     Dosage: UNK
     Dates: start: 20190901
  10. VALACICLOVIR [Concomitant]
     Active Substance: VALACYCLOVIR HYDROCHLORIDE
     Indication: PROPHYLAXIS
     Dosage: UNK
     Dates: start: 20190831
  11. METAMUCIL [Concomitant]
     Active Substance: PLANTAGO SEED
     Indication: PROPHYLAXIS
     Dosage: UNK
     Dates: start: 20190909
  12. AXICABTAGENE CILOLEUCEL [Suspect]
     Active Substance: AXICABTAGENE CILOLEUCEL
     Indication: NON-HODGKIN^S LYMPHOMA
     Dosage: 68 ML, ONCE
     Route: 042
     Dates: start: 20190828, end: 20190828
  13. BISACODYL. [Concomitant]
     Active Substance: BISACODYL
     Indication: PROPHYLAXIS
     Dosage: UNK
     Dates: start: 20190907
  14. MAGNESIUM HYDROXIDE. [Concomitant]
     Active Substance: MAGNESIUM HYDROXIDE
     Indication: PROPHYLAXIS
     Dosage: UNK
     Dates: start: 2008
  15. ACETYLSALICYLZUUR [Concomitant]
     Active Substance: ASPIRIN
     Dosage: RESTARTED
     Dates: start: 2019
  16. OMEPRAZOLE. [Concomitant]
     Active Substance: OMEPRAZOLE
     Indication: PROPHYLAXIS
     Dosage: UNK
     Dates: start: 20190823
  17. SIMVASTATINE [Concomitant]
     Active Substance: SIMVASTATIN
     Indication: PROPHYLAXIS
     Dosage: UNK
     Dates: start: 201206, end: 20190923
  18. CYCLOPHOSPHAMIDE. [Suspect]
     Active Substance: CYCLOPHOSPHAMIDE
     Indication: BONE MARROW CONDITIONING REGIMEN
     Dosage: 500 MG/M2, QD
     Route: 042
     Dates: start: 20190823, end: 20190825
  19. LEVETIRACETAM. [Suspect]
     Active Substance: LEVETIRACETAM
     Indication: PROPHYLAXIS
     Dosage: 750 MG, BID
     Route: 048
     Dates: start: 20190822, end: 201909

REACTIONS (1)
  - Pancytopenia [Recovered/Resolved]

NARRATIVE: CASE EVENT DATE: 20190920
